FAERS Safety Report 16508570 (Version 2)
Quarter: 2019Q3

REPORT INFORMATION
  Report Type: Spontaneous
  Country: JP (occurrence: JP)
  Receive Date: 20190701
  Receipt Date: 20190723
  Transmission Date: 20191004
  Serious: Yes (Life-Threatening, Other)
  Sender: FDA-Public Use
  Company Number: JP-GILEAD-2019-0401958

PATIENT
  Age: 79 Year
  Sex: Male
  Weight: 71.75 kg

DRUGS (11)
  1. LIVACT [AMINO ACIDS NOS] [Concomitant]
     Indication: BLOOD ALBUMIN DECREASED
  2. REBAMIPIDE [Concomitant]
     Active Substance: REBAMIPIDE
  3. EPCLUSA [Suspect]
     Active Substance: SOFOSBUVIR\VELPATASVIR
     Indication: CHRONIC HEPATITIS C
  4. FUROSEMIDE. [Concomitant]
     Active Substance: FUROSEMIDE
     Indication: ASCITES
  5. EPCLUSA [Suspect]
     Active Substance: SOFOSBUVIR\VELPATASVIR
     Indication: HEPATIC CIRRHOSIS
     Dosage: UNK
     Route: 048
     Dates: start: 20190410, end: 20190411
  6. FEBURIC [Concomitant]
     Active Substance: FEBUXOSTAT
  7. SPIRONOLACTONE. [Concomitant]
     Active Substance: SPIRONOLACTONE
     Indication: ASCITES
  8. LYRICA [Concomitant]
     Active Substance: PREGABALIN
  9. BIO-THREE [Concomitant]
     Active Substance: HERBALS
  10. JANUVIA [Concomitant]
     Active Substance: SITAGLIPTIN PHOSPHATE
  11. BILANOA [Concomitant]
     Active Substance: BILASTINE

REACTIONS (2)
  - Anorectal varices [Recovering/Resolving]
  - Lower gastrointestinal haemorrhage [Recovering/Resolving]

NARRATIVE: CASE EVENT DATE: 20190411
